FAERS Safety Report 13662819 (Version 5)
Quarter: 2018Q4

REPORT INFORMATION
  Report Type: Report from Study
  Country: None (occurrence: US)
  Receive Date: 20170619
  Receipt Date: 20181029
  Transmission Date: 20190204
  Serious: Yes (Hospitalization, Other)
  Sender: FDA-Public Use
  Company Number: US-ABBVIE-17K-163-1942502-00

PATIENT
  Age: 25 Year
  Sex: Male
  Weight: 52.21 kg

DRUGS (5)
  1. HUMIRA [Suspect]
     Active Substance: ADALIMUMAB
     Route: 058
     Dates: start: 201608
  2. IMURAN [Concomitant]
     Active Substance: AZATHIOPRINE
     Indication: CROHN^S DISEASE
  3. AMIODARONE [Concomitant]
     Active Substance: AMIODARONE
     Indication: PRODUCT USED FOR UNKNOWN INDICATION
  4. OMEPRAZOLE. [Concomitant]
     Active Substance: OMEPRAZOLE
     Indication: PRODUCT USED FOR UNKNOWN INDICATION
  5. HUMIRA [Suspect]
     Active Substance: ADALIMUMAB
     Indication: CROHN^S DISEASE
     Route: 058
     Dates: start: 20150523, end: 201607

REACTIONS (17)
  - Crohn^s disease [Unknown]
  - Intestinal obstruction [Recovered/Resolved]
  - Gastrointestinal fistula [Recovered/Resolved]
  - Cervical vertebral fracture [Recovered/Resolved]
  - Road traffic accident [Recovering/Resolving]
  - Amnesia [Unknown]
  - Stress [Unknown]
  - Brain oedema [Not Recovered/Not Resolved]
  - Scapula fracture [Not Recovered/Not Resolved]
  - Abdominal adhesions [Recovered/Resolved]
  - Clavicle fracture [Not Recovered/Not Resolved]
  - Weight decreased [Recovering/Resolving]
  - Depression [Not Recovered/Not Resolved]
  - Insomnia [Unknown]
  - Pain [Recovered/Resolved]
  - Jaw fracture [Not Recovered/Not Resolved]
  - Drug ineffective [Unknown]

NARRATIVE: CASE EVENT DATE: 2016
